FAERS Safety Report 4349207-2 (Version None)
Quarter: 2004Q2

REPORT INFORMATION
  Report Type: 
  Country: None (occurrence: None)
  Receive Date: 20040428
  Receipt Date: 20040420
  Transmission Date: 20050107
  Serious: Yes (Life-Threatening)
  Sender: FDA-Public Use
  Company Number: IT-ROCHE-364794

PATIENT
  Age: 14 Year
  Sex: Female

DRUGS (3)
  1. ROCEPHIN [Suspect]
     Indication: SINUSITIS
     Route: 030
     Dates: start: 20030418, end: 20030418
  2. FROBEN [Concomitant]
     Indication: SINUSITIS
     Route: 048
     Dates: start: 20030417, end: 20030417
  3. VICKS MEDINITE [Concomitant]
     Indication: SINUSITIS
     Route: 048
     Dates: start: 20030417, end: 20030417

REACTIONS (4)
  - MALAISE [None]
  - TREMOR [None]
  - URTICARIA [None]
  - VOMITING [None]
